FAERS Safety Report 7335720-2 (Version None)
Quarter: 2011Q1

REPORT INFORMATION
  Report Type: 
  Country: None (occurrence: None)
  Receive Date: 20110307
  Receipt Date: 20110228
  Transmission Date: 20110831
  Serious: Yes (Death, Hospitalization)
  Sender: FDA-Public Use
  Company Number: B0699601A

PATIENT
  Age: 61 Year
  Sex: Male
  Weight: 147.7 kg

DRUGS (11)
  1. PRILOSEC [Concomitant]
  2. GLYBURIDE [Concomitant]
  3. HYDROCHLOROTHIAZIDE [Concomitant]
  4. LIPITOR [Concomitant]
  5. JANUVIA [Concomitant]
  6. GLUCOPHAGE [Concomitant]
  7. AVANDIA [Suspect]
     Indication: DIABETES MELLITUS
     Dosage: 8MG PER DAY
     Route: 048
     Dates: start: 20000101, end: 20080201
  8. LANOXIN [Concomitant]
  9. COZAAR [Concomitant]
  10. COUMADIN [Concomitant]
  11. INSULIN [Concomitant]

REACTIONS (4)
  - ANGINA UNSTABLE [None]
  - CARDIAC FAILURE CONGESTIVE [None]
  - CORONARY ARTERY DISEASE [None]
  - CARDIAC ARREST [None]
